FAERS Safety Report 7883748-6 (Version None)
Quarter: 2011Q4

REPORT INFORMATION
  Report Type: 
  Country: None (occurrence: None)
  Receive Date: 20111031
  Receipt Date: 20111018
  Transmission Date: 20120403
  Serious: Yes (Other)
  Sender: FDA-Public Use
  Company Number: 2011P1009614

PATIENT
  Age: 17 Month
  Sex: Male

DRUGS (5)
  1. PEGYLATED ASPARAGINASE [Concomitant]
  2. METHOTREXATE [Concomitant]
  3. VINCRISTINE [Concomitant]
  4. DEXAMETHASONE [Suspect]
     Indication: B PRECURSOR TYPE ACUTE LEUKAEMIA
     Dosage: PER PROTOCOL;
  5. DAUNORUBICIN HCL [Concomitant]

REACTIONS (9)
  - SYSTEMIC CANDIDA [None]
  - OESOPHAGEAL STENOSIS [None]
  - GASTROINTESTINAL NECROSIS [None]
  - SKIN CANDIDA [None]
  - FEBRILE NEUTROPENIA [None]
  - OESOPHAGEAL CANDIDIASIS [None]
  - ORAL CANDIDIASIS [None]
  - PARAOESOPHAGEAL ABSCESS [None]
  - OESOPHAGITIS [None]
